FAERS Safety Report 6864343-4 (Version None)
Quarter: 2010Q3

REPORT INFORMATION
  Report Type: 
  Country: None (occurrence: None)
  Receive Date: 20100721
  Receipt Date: 20080319
  Transmission Date: 20110219
  Serious: No
  Sender: FDA-Public Use
  Company Number: US-PFIZER INC-2008026224

PATIENT
  Sex: Female
  Weight: 74.8 kg

DRUGS (5)
  1. CHANTIX [Suspect]
     Indication: SMOKING CESSATION THERAPY
     Dates: start: 20080211, end: 20080315
  2. WELCHOL [Concomitant]
     Indication: BLOOD CHOLESTEROL INCREASED
  3. MULTI-VITAMINS [Concomitant]
  4. TYLENOL [Concomitant]
  5. FISH OIL [Concomitant]

REACTIONS (3)
  - DEPRESSION [None]
  - IRRITABILITY [None]
  - MUSCLE SPASMS [None]
